FAERS Safety Report 16973167 (Version 1)
Quarter: 2019Q4

REPORT INFORMATION
  Report Type: Report from Study
  Country: KR (occurrence: KR)
  Receive Date: 20191030
  Receipt Date: 20191030
  Transmission Date: 20200122
  Serious: Yes (Hospitalization)
  Sender: FDA-Public Use
  Company Number: KR-ROCHE-2058284

PATIENT
  Age: 55 Year
  Sex: Female
  Weight: 59.5 kg

DRUGS (2)
  1. MYPOL [CODEINE PHOSPHATE;IBUPROFEN;PARACETAMOL] [Concomitant]
     Indication: PAIN PROPHYLAXIS
     Route: 048
     Dates: start: 20171215
  2. TRASTUZUMAB EMTANSINE [Suspect]
     Active Substance: ADO-TRASTUZUMAB EMTANSINE
     Indication: BREAST CANCER
     Dosage: SUBSEQUENT DOSING RECEIVED ON 05/JAN/2018, 02/FEB/2018, 23/FEB/2018, 16/MAR/2018, 13/APR/2018, 09/MA
     Route: 042
     Dates: start: 20171215

REACTIONS (2)
  - Nausea [Recovered/Resolved]
  - Cytomegalovirus colitis [Recovered/Resolved]

NARRATIVE: CASE EVENT DATE: 20180105
